FAERS Safety Report 14746679 (Version 1)
Quarter: 2018Q2

REPORT INFORMATION
  Report Type: Spontaneous
  Country: DZ (occurrence: DZ)
  Receive Date: 20180411
  Receipt Date: 20180411
  Transmission Date: 20180711
  Serious: Yes (Death)
  Sender: FDA-Public Use
  Company Number: DZ-ACTELION-A-CH2018-170298

PATIENT
  Age: 11 Year
  Sex: Female

DRUGS (1)
  1. ZAVESCA [Suspect]
     Active Substance: MIGLUSTAT
     Indication: NIEMANN-PICK DISEASE
     Dosage: UNK MG, UNK
     Route: 048
     Dates: end: 20180402

REACTIONS (4)
  - Niemann-Pick disease [Fatal]
  - General physical health deterioration [Unknown]
  - Malnutrition [Fatal]
  - Weight decreased [Unknown]
